FAERS Safety Report 21307812 (Version 1)
Quarter: 2022Q3

REPORT INFORMATION
  Report Type: Spontaneous
  Country: GB (occurrence: GB)
  Receive Date: 20220908
  Receipt Date: 20220908
  Transmission Date: 20221027
  Serious: Yes (Other)
  Sender: FDA-Public Use
  Company Number: GB-MHRA-MED-202208300908029600-RBHDT

PATIENT
  Sex: Female

DRUGS (1)
  1. TRIMETHOPRIM [Suspect]
     Active Substance: TRIMETHOPRIM
     Indication: Urinary tract infection
     Dosage: 400 MILLIGRAM DAILY;  FOR 3 DAYS
     Route: 065
     Dates: start: 20220820

REACTIONS (3)
  - Vertigo [Unknown]
  - Hyperhidrosis [Unknown]
  - Paraesthesia [Unknown]
